FAERS Safety Report 20670647 (Version 5)
Quarter: 2022Q3

REPORT INFORMATION
  Report Type: Spontaneous
  Country: JP (occurrence: JP)
  Receive Date: 20220404
  Receipt Date: 20220912
  Transmission Date: 20221026
  Serious: Yes (Death, Life-Threatening, Hospitalization, Disabling, Other)
  Sender: FDA-Public Use
  Company Number: JP-MSD-M2022-13002

PATIENT
  Age: 52 Year
  Sex: Female
  Weight: 52 kg

DRUGS (2)
  1. KEYTRUDA [Suspect]
     Active Substance: PEMBROLIZUMAB
     Indication: Uterine cancer
     Dosage: 200 MILLIGRAM, Q3W
     Route: 041
     Dates: start: 20220202, end: 20220202
  2. LENVATINIB MESYLATE [Suspect]
     Active Substance: LENVATINIB MESYLATE
     Indication: Uterine cancer
     Dosage: 20 MILLIGRAM, QD
     Route: 048
     Dates: start: 20220202, end: 20220209

REACTIONS (10)
  - Hyponatraemia [Recovering/Resolving]
  - Malignant neoplasm progression [Fatal]
  - Intestinal perforation [Recovering/Resolving]
  - Enterocutaneous fistula [Recovered/Resolved with Sequelae]
  - Enterovesical fistula [Recovered/Resolved with Sequelae]
  - Urogenital fistula [Recovered/Resolved with Sequelae]
  - Female genital tract fistula [Recovered/Resolved with Sequelae]
  - Peritonitis [Recovering/Resolving]
  - Jaundice [Unknown]
  - Somnolence [Unknown]

NARRATIVE: CASE EVENT DATE: 20220210
